FAERS Safety Report 12408136 (Version 4)
Quarter: 2021Q1

REPORT INFORMATION
  Report Type: Report from Study
  Country: CH (occurrence: CH)
  Receive Date: 20160526
  Receipt Date: 20210224
  Transmission Date: 20210419
  Serious: Yes (Life-Threatening, Congenital Anomaly)
  Sender: FDA-Public Use
  Company Number: CH-PFIZER INC-2016274139

PATIENT

DRUGS (12)
  1. CITALOPRAM [Concomitant]
     Active Substance: CITALOPRAM HYDROBROMIDE
     Dosage: UNK
     Route: 064
  2. CYAMEMAZINE [Concomitant]
     Active Substance: CYAMEMAZINE
     Dosage: UNK
     Route: 064
  3. OLMESARTAN [Concomitant]
     Active Substance: OLMESARTAN
     Dosage: UNK
     Route: 064
  4. TOBACCO [Concomitant]
     Active Substance: TOBACCO LEAF
     Dosage: UNK
     Route: 064
  5. PREGABALIN. [Suspect]
     Active Substance: PREGABALIN
     Indication: MENTAL DISORDER
  6. PREGABALIN. [Suspect]
     Active Substance: PREGABALIN
     Indication: NEURALGIA
     Dosage: 75 MG, DAILY
     Route: 064
  7. OXAZEPAM. [Concomitant]
     Active Substance: OXAZEPAM
     Dosage: UNK
     Route: 064
  8. PAROXETINE. [Concomitant]
     Active Substance: PAROXETINE
     Dosage: UNK
     Route: 064
  9. ETHAMSYLATE [Concomitant]
     Active Substance: ETHAMSYLATE
     Dosage: UNK
     Route: 064
  10. PRAZEPAM [Concomitant]
     Active Substance: PRAZEPAM
     Dosage: UNK
     Route: 064
  11. CLOMIPRAMINE [Concomitant]
     Active Substance: CLOMIPRAMINE
     Dosage: UNK
     Route: 064
  12. CALCIUM DOBESILATE [Concomitant]
     Active Substance: CALCIUM DOBESILATE
     Dosage: UNK
     Route: 064

REACTIONS (2)
  - Maternal exposure during pregnancy [Unknown]
  - Atrial septal defect [Unknown]
